FAERS Safety Report 8869321 (Version 1)
Quarter: 2012Q4

REPORT INFORMATION
  Report Type: Spontaneous
  Country: US (occurrence: None)
  Receive Date: 20121025
  Receipt Date: 20121025
  Transmission Date: 20130627
  Serious: Yes (Hospitalization)
  Sender: FDA-Public Use
  Company Number: None

PATIENT
  Age: 82 Year
  Sex: Female

DRUGS (1)
  1. PRADAXA [Suspect]
     Indication: ATRIAL FIBRILLATION
     Dosage: 150 mg twice daily po
     Route: 048

REACTIONS (4)
  - Haemoglobin decreased [None]
  - Haematocrit decreased [None]
  - International normalised ratio decreased [None]
  - Gastrointestinal haemorrhage [None]
